FAERS Safety Report 6249306-4 (Version None)
Quarter: 2009Q2

REPORT INFORMATION
  Report Type: 
  Country: None (occurrence: None)
  Receive Date: 20090629
  Receipt Date: 20090427
  Transmission Date: 20091009
  Serious: Yes (Other)
  Sender: FDA-Public Use
  Company Number: US-BRISTOL-MYERS SQUIBB COMPANY-14606032

PATIENT
  Age: 50 Year
  Sex: Female

DRUGS (1)
  1. SPRYCEL [Suspect]
     Indication: CHRONIC MYELOID LEUKAEMIA
     Dosage: REDUCED TO 50MG ON 30JUN08.
     Dates: start: 20080601, end: 20080701

REACTIONS (6)
  - DIARRHOEA [None]
  - FATIGUE [None]
  - FUNGAL INFECTION [None]
  - NAUSEA [None]
  - OEDEMA [None]
  - RASH PRURITIC [None]
